FAERS Safety Report 9200338 (Version 2)
Quarter: 2013Q3

REPORT INFORMATION
  Report Type: Spontaneous
  Country: IE (occurrence: IE)
  Receive Date: 20130329
  Receipt Date: 20130828
  Transmission Date: 20140515
  Serious: Yes (Other)
  Sender: FDA-Public Use
  Company Number: IE-B.I. PHARMACEUTICALS,INC./RIDGEFIELD-2013-UK-00646UK

PATIENT
  Sex: 0

DRUGS (1)
  1. PRADAXA [Suspect]
     Indication: ATRIAL FIBRILLATION
     Dosage: 220 MG

REACTIONS (1)
  - Cerebral infarction [Not Recovered/Not Resolved]
